FAERS Safety Report 16968339 (Version 2)
Quarter: 2019Q4

REPORT INFORMATION
  Report Type: Spontaneous
  Country: US (occurrence: US)
  Receive Date: 20191028
  Receipt Date: 20191205
  Transmission Date: 20200122
  Serious: No
  Sender: FDA-Public Use
  Company Number: US-AMGEN-USASP2019175714

PATIENT
  Age: 75 Year
  Sex: Female
  Weight: 83.45 kg

DRUGS (2)
  1. PROCRIT [Suspect]
     Active Substance: ERYTHROPOIETIN
     Indication: PANCYTOPENIA
     Dosage: 1 MILLILITER, 2 TIMES/WK (4000 U/ML) (THURSDAY AND SATURDAY)
     Route: 058
     Dates: start: 20190521, end: 2019
  2. PROCRIT [Suspect]
     Active Substance: ERYTHROPOIETIN
     Dosage: 1 MILLILITER, 3 TIMES/WK (4000 U/ML) (MONDAY, WEDNESDAY AND FRIDAY)
     Route: 058
     Dates: start: 2019

REACTIONS (3)
  - Off label use [Unknown]
  - Therapeutic response decreased [Not Recovered/Not Resolved]
  - Injection site pain [Not Recovered/Not Resolved]

NARRATIVE: CASE EVENT DATE: 2019
